FAERS Safety Report 20876412 (Version 1)
Quarter: 2022Q2

REPORT INFORMATION
  Report Type: Report from Study
  Country: DE (occurrence: None)
  Receive Date: 20220526
  Receipt Date: 20220526
  Transmission Date: 20220720
  Serious: Yes (Hospitalization)
  Sender: FDA-Public Use
  Company Number: DE-ROCHE-3100064

PATIENT
  Age: 62 Year
  Sex: Female
  Weight: 98 kg

DRUGS (18)
  1. ATEZOLIZUMAB [Suspect]
     Active Substance: ATEZOLIZUMAB
     Indication: Breast cancer
     Dosage: THE LAST DOSE ADMINISTERED WAS ON 22/MAR/2022
     Route: 042
     Dates: start: 20220113, end: 20220412
  2. PACLITAXEL [Suspect]
     Active Substance: PACLITAXEL
     Indication: Breast cancer
     Dosage: THE MOST RECENT DOSE PRIOR TO SAE WAS GIVEN ON 05/APR/2022
     Route: 042
     Dates: start: 20220113
  3. CYCLOPHOSPHAMIDE [Suspect]
     Active Substance: CYCLOPHOSPHAMIDE
     Indication: Breast cancer
     Route: 042
     Dates: end: 20220412
  4. CYCLOPHOSPHAMIDE [Suspect]
     Active Substance: CYCLOPHOSPHAMIDE
     Route: 042
     Dates: start: 20220510
  5. CARBOPLATIN [Suspect]
     Active Substance: CARBOPLATIN
     Indication: Breast cancer
     Dosage: THE LAST DOSE PRIOR TO SAE WAS GIVEN ON 05/APR/2022
     Route: 042
     Dates: start: 20220113
  6. EPIRUBICIN [Suspect]
     Active Substance: EPIRUBICIN
     Indication: Breast cancer
     Route: 042
     Dates: end: 20220412
  7. EPIRUBICIN [Suspect]
     Active Substance: EPIRUBICIN
     Route: 042
     Dates: start: 20220510
  8. PREDNISOLONE [Concomitant]
     Active Substance: PREDNISOLONE
     Dates: start: 20220419, end: 20220425
  9. PREDNISOLONE [Concomitant]
     Active Substance: PREDNISOLONE
     Route: 048
     Dates: start: 20220426, end: 20220503
  10. FILGRASTIM [Concomitant]
     Active Substance: FILGRASTIM
     Dosage: 30MIO IU ONCE
     Dates: start: 20220205, end: 20220205
  11. GRANISETRON [Concomitant]
     Active Substance: GRANISETRON
     Dates: start: 20220113, end: 20220405
  12. DEXAMETHASONE [Concomitant]
     Active Substance: DEXAMETHASONE
     Dates: start: 20220113, end: 20220113
  13. DEXAMETHASONE [Concomitant]
     Active Substance: DEXAMETHASONE
     Dates: start: 20220125
  14. CLEMASTINE [Concomitant]
     Active Substance: CLEMASTINE
     Dates: start: 20220113, end: 20220405
  15. CIMETIDIN [Concomitant]
     Dates: start: 20220113, end: 20220405
  16. PANTOZOL [Concomitant]
     Active Substance: PANTOPRAZOLE SODIUM
     Dates: start: 20220419
  17. KALINOR [Concomitant]
     Dates: start: 20220425, end: 20220425
  18. SODIUM BICARBONATE [Concomitant]
     Active Substance: SODIUM BICARBONATE
     Dates: start: 20220419

REACTIONS (1)
  - Blood creatinine increased [Recovered/Resolved]

NARRATIVE: CASE EVENT DATE: 20220412
